FAERS Safety Report 5099461-7 (Version None)
Quarter: 2006Q3

REPORT INFORMATION
  Report Type: 
  Country: None (occurrence: None)
  Receive Date: 20060908
  Receipt Date: 20060830
  Transmission Date: 20061208
  Serious: Yes (Hospitalization)
  Sender: FDA-Public Use
  Company Number: US-JNJFOC-20030704830

PATIENT
  Sex: Male
  Weight: 70.76 kg

DRUGS (7)
  1. REMICADE [Suspect]
  2. REMICADE [Suspect]
  3. REMICADE [Suspect]
  4. REMICADE [Suspect]
     Indication: CROHN'S DISEASE
  5. 6-MP [Concomitant]
  6. ANTIBIOTIC [Concomitant]
  7. PREDNISONE TAB [Concomitant]

REACTIONS (3)
  - ABDOMINAL ABSCESS [None]
  - FISTULA [None]
  - ILEAL PERFORATION [None]
